FAERS Safety Report 9461671 (Version 1)
Quarter: 2013Q3

REPORT INFORMATION
  Report Type: Spontaneous
  Country: US (occurrence: None)
  Receive Date: 20130815
  Receipt Date: 20130815
  Transmission Date: 20140515
  Serious: Yes (Disabling)
  Sender: FDA-Public Use
  Company Number: None

PATIENT
  Age: 54 Year
  Sex: Female
  Weight: 73.94 kg

DRUGS (11)
  1. TOPROL XL [Suspect]
     Indication: CARDIAC FAILURE
     Route: 048
     Dates: start: 20130410, end: 20130806
  2. VELCADE [Concomitant]
  3. ZOMETA [Concomitant]
  4. OXYCONTIN [Concomitant]
  5. EPLERINONE [Concomitant]
  6. REVLAMID [Concomitant]
  7. VIVELLE DOT [Concomitant]
  8. LISINOPRIL [Concomitant]
  9. MVI [Concomitant]
  10. VIT D [Concomitant]
  11. VITAMIN B12 [Concomitant]

REACTIONS (2)
  - Deafness [None]
  - Tinnitus [None]
